FAERS Safety Report 11068695 (Version 1)
Quarter: 2015Q2

REPORT INFORMATION
  Report Type: Report from Study
  Country: IT (occurrence: IT)
  Receive Date: 20150427
  Receipt Date: 20150427
  Transmission Date: 20150821
  Serious: Yes (Hospitalization)
  Sender: FDA-Public Use
  Company Number: IT-ROCHE-1060983

PATIENT
  Age: 66 Year
  Sex: Female
  Weight: 49 kg

DRUGS (56)
  1. OBINUTUZUMAB [Suspect]
     Active Substance: OBINUTUZUMAB
     Indication: DIFFUSE LARGE B-CELL LYMPHOMA
     Dosage: RECENT DOSE PRIOR TO EVENT: VOLUME OF 250ML AND DOSE CONCENTRATION 4MG/ML ON 30/MAR/2012
     Route: 042
     Dates: start: 20120307
  2. DIFLUCAN [Concomitant]
     Active Substance: FLUCONAZOLE
     Indication: CANDIDA INFECTION
     Route: 065
     Dates: start: 20120427, end: 20120503
  3. DELTACORTENE [Concomitant]
     Active Substance: PREDNISONE
     Route: 065
     Dates: start: 20120403, end: 20120407
  4. MERREM [Concomitant]
     Active Substance: MEROPENEM
     Indication: PYREXIA
     Route: 065
     Dates: start: 20120331, end: 20120403
  5. DIAMOX SEQUELS [Concomitant]
     Active Substance: ACETAZOLAMIDE
     Route: 065
     Dates: start: 20120330, end: 20120330
  6. KCL-RETARD ZYMA [Concomitant]
     Indication: HYPOKALAEMIA
     Route: 065
     Dates: start: 20120427, end: 20120430
  7. LASIX [Concomitant]
     Active Substance: FUROSEMIDE
     Route: 065
     Dates: start: 20120401, end: 20120401
  8. X-PREP [Concomitant]
     Indication: CONSTIPATION
     Route: 065
     Dates: start: 20120410, end: 20120516
  9. PERFALGAN [Concomitant]
     Active Substance: ACETAMINOPHEN
     Indication: HEADACHE
     Route: 065
     Dates: start: 20120401, end: 20120401
  10. DEURSIL [Concomitant]
     Active Substance: URSODIOL
     Route: 065
     Dates: start: 20120427, end: 20120510
  11. VENACTONE [Concomitant]
     Indication: HYPOCALCAEMIA
     Route: 065
     Dates: start: 20120428, end: 20120428
  12. ACTRAPID [Concomitant]
     Active Substance: INSULIN HUMAN
     Route: 065
     Dates: start: 20120428, end: 20120430
  13. DOXORUBICIN [Suspect]
     Active Substance: DOXORUBICIN
     Indication: DIFFUSE LARGE B-CELL LYMPHOMA
     Dosage: ON 30/MAR/2012, RECENT DOSE PRIOR TO EVENT OF DOXORUBICIN AT A DOSE OF 70 MG
     Route: 042
     Dates: start: 20120308
  14. VINCRISTINE [Suspect]
     Active Substance: VINCRISTINE
     Indication: DIFFUSE LARGE B-CELL LYMPHOMA
     Dosage: ON 30/MAR/2012, RECENT DOSE PRIOR TO EVENT OF VINCRISTINE AT A DOSE OF 2 MG
     Route: 042
     Dates: start: 20120308
  15. KCL-RETARD ZYMA [Concomitant]
     Indication: FATIGUE
     Route: 065
     Dates: start: 20120309, end: 20120324
  16. CEFTRIAXONE. [Concomitant]
     Active Substance: CEFTRIAXONE
     Indication: ANTIBIOTIC PROPHYLAXIS
     Route: 065
     Dates: start: 20120314, end: 20120320
  17. TAZOCIN [Concomitant]
     Active Substance: PIPERACILLIN SODIUM\TAZOBACTAM SODIUM
     Indication: ANTIBIOTIC PROPHYLAXIS
     Route: 065
     Dates: start: 20120321, end: 20120330
  18. LASIX [Concomitant]
     Active Substance: FUROSEMIDE
     Route: 065
     Dates: start: 20120502, end: 20120502
  19. NAVOBAN [Concomitant]
     Active Substance: TROPISETRON HYDROCHLORIDE
     Indication: PROPHYLAXIS OF NAUSEA AND VOMITING
     Route: 065
     Dates: start: 20120330, end: 20120330
  20. CALCIUM GLUCONATE. [Concomitant]
     Active Substance: CALCIUM GLUCONATE
     Indication: MUSCULAR WEAKNESS
     Route: 065
     Dates: start: 20120428, end: 20120429
  21. PARIET [Concomitant]
     Active Substance: RABEPRAZOLE SODIUM
     Indication: PROPHYLAXIS
     Route: 065
     Dates: start: 20120302, end: 20120328
  22. TACHIPIRINA [Concomitant]
     Active Substance: ACETAMINOPHEN
     Indication: HEADACHE
     Route: 065
     Dates: start: 20120326, end: 20120326
  23. TACHIPIRINA [Concomitant]
     Active Substance: ACETAMINOPHEN
     Route: 065
     Dates: start: 20120403
  24. TACHIPIRINA [Concomitant]
     Active Substance: ACETAMINOPHEN
     Route: 065
     Dates: start: 20120330, end: 20120330
  25. SOLU-CORTEF [Concomitant]
     Active Substance: HYDROCORTISONE SODIUM SUCCINATE
     Indication: PROPHYLAXIS
     Route: 065
     Dates: start: 20120323, end: 20120323
  26. KCL-RETARD ZYMA [Concomitant]
     Indication: MUSCULAR WEAKNESS
     Route: 065
     Dates: start: 20120410, end: 20120612
  27. DIFLUCAN [Concomitant]
     Active Substance: FLUCONAZOLE
     Route: 065
     Dates: start: 20120410, end: 20120416
  28. LASIX [Concomitant]
     Active Substance: FUROSEMIDE
     Indication: POLYURIA
     Route: 065
     Dates: start: 20120326, end: 20120326
  29. HYALISTIL [Concomitant]
     Indication: DRY EYE
     Route: 065
     Dates: start: 20120320, end: 20120321
  30. ACICLOVIR [Concomitant]
     Active Substance: ACYCLOVIR
     Indication: ANTIVIRAL PROPHYLAXIS
     Route: 065
     Dates: start: 20120403, end: 20120612
  31. SULFAMETHOXAZOLE/TRIMETHOPRIM [Concomitant]
     Active Substance: SULFAMETHOXAZOLE\TRIMETHOPRIM
     Indication: ANTIBIOTIC PROPHYLAXIS
     Route: 065
     Dates: start: 20120403, end: 20120426
  32. BENERVA [Concomitant]
     Active Substance: THIAMINE
     Route: 065
     Dates: start: 20120427, end: 20120503
  33. ZYLORIC [Concomitant]
     Active Substance: ALLOPURINOL
     Route: 065
     Dates: start: 20120329, end: 20120401
  34. CIPRALEX [Concomitant]
     Active Substance: ESCITALOPRAM OXALATE
     Indication: PROPHYLAXIS
  35. CALCIUM GLUCONATE. [Concomitant]
     Active Substance: CALCIUM GLUCONATE
     Route: 065
     Dates: start: 20120308, end: 20120402
  36. DIFLUCAN [Concomitant]
     Active Substance: FLUCONAZOLE
     Indication: ANTIFUNGAL PROPHYLAXIS
     Route: 065
     Dates: start: 20120317, end: 20120328
  37. INSULIN [Concomitant]
     Active Substance: INSULIN NOS
     Route: 065
     Dates: start: 20120502, end: 20120508
  38. ANTRA [Concomitant]
     Active Substance: OMEPRAZOLE
     Indication: PROPHYLAXIS
     Route: 065
     Dates: start: 20120427, end: 20120508
  39. TARGOSID [Concomitant]
     Active Substance: TEICOPLANIN
     Indication: DEVICE RELATED INFECTION
     Route: 065
     Dates: start: 20120501, end: 20120510
  40. ASPIRIN. [Concomitant]
     Active Substance: ASPIRIN
     Indication: THROMBOSIS PROPHYLAXIS
     Dosage: LOW DOSE ASPIRIN
     Route: 065
     Dates: start: 20120316, end: 20120328
  41. DIAMOX SEQUELS [Concomitant]
     Active Substance: ACETAZOLAMIDE
     Route: 065
     Dates: start: 20120323, end: 20120323
  42. CO-EFFERALGAN [Concomitant]
     Active Substance: ACETAMINOPHEN\CODEINE PHOSPHATE
     Indication: HEADACHE
     Route: 065
     Dates: start: 20120401, end: 20120401
  43. INSULIN [Concomitant]
     Active Substance: INSULIN NOS
     Indication: HYPERGLYCAEMIA
     Route: 065
     Dates: start: 20120331, end: 20120401
  44. EPARGRISEOVIT [Concomitant]
     Route: 065
     Dates: start: 20120427, end: 20120429
  45. CYCLOPHOSPHAMIDE. [Suspect]
     Active Substance: CYCLOPHOSPHAMIDE
     Indication: DIFFUSE LARGE B-CELL LYMPHOMA
     Dosage: ON 30/MAR/2012, RECENT DOSE PRIOR TO EVENT OF CYCLOPHOSPHAMIDE AT A DOSE OF 1100 MG
     Route: 042
     Dates: start: 20120308
  46. PREDNISOLONE. [Suspect]
     Active Substance: PREDNISOLONE
     Indication: DIFFUSE LARGE B-CELL LYMPHOMA
     Dosage: RECENT DOSE PRIOR TO EVENT ON 07/APR/2012, 12.5 MG
     Route: 065
     Dates: start: 20120307
  47. TACHIPIRINA [Concomitant]
     Active Substance: ACETAMINOPHEN
     Indication: PYREXIA
     Route: 065
     Dates: start: 20120323, end: 20120323
  48. CONTRAMAL [Concomitant]
     Active Substance: TRAMADOL HYDROCHLORIDE
     Indication: HEADACHE
     Route: 065
     Dates: start: 20120319, end: 20120319
  49. LEVOFLOXACIN. [Concomitant]
     Active Substance: LEVOFLOXACIN
     Indication: PYREXIA
     Route: 065
     Dates: start: 20120410, end: 20120416
  50. SELEPARINA [Concomitant]
     Active Substance: NADROPARIN CALCIUM
     Indication: THROMBOSIS PROPHYLAXIS
     Route: 065
     Dates: start: 20120429, end: 20120510
  51. POTASSIUM CHLORIDE. [Concomitant]
     Active Substance: POTASSIUM CHLORIDE
     Indication: HYPOKALAEMIA
     Route: 065
     Dates: start: 20120419, end: 20120427
  52. TRIMETON (ITALY) [Concomitant]
     Indication: PROPHYLAXIS
     Route: 065
     Dates: start: 20120323, end: 20120323
  53. TRIMETON (ITALY) [Concomitant]
     Route: 065
     Dates: start: 20120330, end: 20120330
  54. ZYLORIC [Concomitant]
     Active Substance: ALLOPURINOL
     Indication: PROPHYLAXIS
     Route: 065
     Dates: start: 20120319, end: 20120320
  55. VENACTONE [Concomitant]
     Indication: HYPOCALCAEMIA
     Route: 065
     Dates: start: 20120325, end: 20120326
  56. BB-K8 [Concomitant]
     Indication: ANTIBIOTIC PROPHYLAXIS
     Route: 065
     Dates: start: 20120325, end: 20120403

REACTIONS (1)
  - Pneumonitis [Recovered/Resolved]

NARRATIVE: CASE EVENT DATE: 20120418
